FAERS Safety Report 25842086 (Version 1)
Quarter: 2025Q3

REPORT INFORMATION
  Report Type: Other
  Country: US (occurrence: US)
  Receive Date: 20250924
  Receipt Date: 20250924
  Transmission Date: 20251020
  Serious: No
  Sender: SIGMA TAU
  Company Number: US-LEADIANT GMBH-2025LBI000004

PATIENT
  Sex: Female

DRUGS (1)
  1. MATULANE [Suspect]
     Active Substance: PROCARBAZINE HYDROCHLORIDE
     Indication: Brain neoplasm malignant
     Route: 048
     Dates: start: 20240326

REACTIONS (5)
  - Asthenia [Unknown]
  - Visual impairment [Unknown]
  - Gait disturbance [Unknown]
  - Seizure [Unknown]
  - Dysphoria [Unknown]
